FAERS Safety Report 5885198-0 (Version None)
Quarter: 2008Q3

REPORT INFORMATION
  Report Type: 
  Country: None (occurrence: None)
  Receive Date: 20080916
  Receipt Date: 20080915
  Transmission Date: 20090109
  Serious: Yes (Death, Other)
  Sender: FDA-Public Use
  Company Number: US-BAXTER-2008BH009120

PATIENT
  Age: 70 Year
  Sex: Female
  Weight: 61 kg

DRUGS (7)
  1. HEPARIN SODIUM INJECTION [Suspect]
     Indication: CARDIAC DISORDER
     Dosage: DOSE UNIT:UNKNOWN
     Route: 042
     Dates: start: 20071113
  2. HEPARIN SODIUM INJECTION [Suspect]
     Indication: THROMBOSIS
     Dosage: DOSE UNIT:UNKNOWN
     Route: 042
     Dates: start: 20071113
  3. COUMADIN [Concomitant]
     Indication: CARDIAC OPERATION
     Route: 065
  4. LASIX [Concomitant]
     Indication: DRUG USE FOR UNKNOWN INDICATION
     Dosage: DOSE UNIT:UNKNOWN
     Route: 065
  5. THYROID PILL [Concomitant]
     Indication: THYROID DISORDER
     Dosage: DOSE UNIT:UNKNOWN
     Route: 065
  6. COUMADIN [Concomitant]
     Route: 065
  7. COUMADIN [Concomitant]
     Route: 065
     Dates: start: 20071114, end: 20071115

REACTIONS (2)
  - BLOOD PRESSURE DECREASED [None]
  - RENAL FAILURE [None]
